FAERS Safety Report 19932204 (Version 1)
Quarter: 2021Q4

REPORT INFORMATION
  Report Type: Spontaneous
  Country: US (occurrence: US)
  Receive Date: 20211006
  Receipt Date: 20211006
  Transmission Date: 20220303
  Serious: Yes (Death)
  Sender: FDA-Public Use
  Company Number: None

PATIENT
  Age: 68 Year
  Sex: Male

DRUGS (2)
  1. ESBRIET [Suspect]
     Active Substance: PIRFENIDONE
     Indication: Pulmonary fibrosis
     Route: 048
     Dates: start: 20200909, end: 20210909
  2. ESBRIET [Suspect]
     Active Substance: PIRFENIDONE
     Dosage: ?          OTHER ROUTE:DAILY W/ FOOD

REACTIONS (1)
  - Death [None]

NARRATIVE: CASE EVENT DATE: 20210909
